FAERS Safety Report 22034006 (Version 4)
Quarter: 2023Q1

REPORT INFORMATION
  Report Type: Spontaneous
  Country: US (occurrence: US)
  Receive Date: 20230224
  Receipt Date: 20230228
  Transmission Date: 20230418
  Serious: Yes (Death, Hospitalization)
  Sender: FDA-Public Use
  Company Number: US-PFIZER INC-202300076392

PATIENT
  Age: 52 Year
  Sex: Female

DRUGS (5)
  1. ATROPINE SULFATE [Suspect]
     Active Substance: ATROPINE SULFATE
     Dosage: UNK
     Route: 065
  2. CALCIUM CHLORIDE [Suspect]
     Active Substance: CALCIUM CHLORIDE
     Dosage: UNK
     Route: 065
  3. DEXTROSE [Suspect]
     Active Substance: DEXTROSE
     Dosage: UNK
     Route: 065
  4. GLUCAGON [Suspect]
     Active Substance: GLUCAGON
     Dosage: UNK
     Route: 065
  5. CHARCOAL [Suspect]
     Active Substance: ACTIVATED CHARCOAL
     Dosage: UNK
     Route: 065

REACTIONS (1)
  - Drug ineffective [Fatal]
